FAERS Safety Report 24806651 (Version 1)
Quarter: 2025Q1

REPORT INFORMATION
  Report Type: Spontaneous
  Country: SE (occurrence: SE)
  Receive Date: 20250104
  Receipt Date: 20250104
  Transmission Date: 20250409
  Serious: Yes (Death, Other)
  Sender: CELLTRION
  Company Number: SE-ROCHE-3182411

PATIENT

DRUGS (5)
  1. RITUXIMAB [Interacting]
     Active Substance: RITUXIMAB
     Indication: Rheumatoid arthritis
     Route: 042
     Dates: start: 20201102
  2. METHOTREXATE [Interacting]
     Active Substance: METHOTREXATE
     Indication: Rheumatoid arthritis
     Route: 065
  3. TOZINAMERAN [Interacting]
     Active Substance: TOZINAMERAN
     Indication: COVID-19 prophylaxis
     Route: 065
  4. TOZINAMERAN [Interacting]
     Active Substance: TOZINAMERAN
     Route: 065
  5. TOZINAMERAN [Interacting]
     Active Substance: TOZINAMERAN
     Route: 065

REACTIONS (4)
  - COVID-19 [Fatal]
  - Vaccine interaction [Fatal]
  - Vaccination failure [Not Recovered/Not Resolved]
  - Underdose [Unknown]
